FAERS Safety Report 15656949 (Version 1)
Quarter: 2018Q4

REPORT INFORMATION
  Report Type: Spontaneous
  Country: FR (occurrence: FR)
  Receive Date: 20181126
  Receipt Date: 20181126
  Transmission Date: 20190205
  Serious: Yes (Other)
  Sender: FDA-Public Use
  Company Number: FR-JNJFOC-20181124971

PATIENT
  Age: 21 Year
  Sex: Male

DRUGS (10)
  1. MACROGOL [Concomitant]
     Active Substance: POLYETHYLENE GLYCOLS
     Route: 065
  2. LEPTICUR [Concomitant]
     Active Substance: TROPATEPINE HYDROCHLORIDE
     Route: 065
  3. RISPERDAL [Suspect]
     Active Substance: RISPERIDONE
     Indication: DELIRIUM
     Route: 048
     Dates: start: 20180822, end: 20180924
  4. VALIUM [Suspect]
     Active Substance: DIAZEPAM
     Indication: DELIRIUM
     Route: 048
     Dates: start: 20180822
  5. TRIMEBUTINE [Concomitant]
     Active Substance: TRIMEBUTINE
     Route: 065
  6. ZOPICLONE [Suspect]
     Active Substance: ZOPICLONE
     Indication: DELIRIUM
     Route: 048
     Dates: start: 20180913
  7. LOXAPAC [Suspect]
     Active Substance: LOXAPINE
     Indication: DELIRIUM
     Route: 048
     Dates: start: 20180823, end: 20180917
  8. TERCIAN [Suspect]
     Active Substance: CYAMEMAZINE
     Indication: DELIRIUM
     Route: 048
     Dates: start: 20180827, end: 20180828
  9. OLANZAPINE. [Suspect]
     Active Substance: OLANZAPINE
     Indication: DELIRIUM
     Route: 048
     Dates: start: 20180917
  10. NOZINAN [Suspect]
     Active Substance: LEVOMEPROMAZINE
     Indication: DELIRIUM
     Route: 048
     Dates: start: 20180828

REACTIONS (4)
  - Off label use [Unknown]
  - Hepatitis [Recovering/Resolving]
  - Rhabdomyolysis [Recovering/Resolving]
  - Product use in unapproved indication [Unknown]

NARRATIVE: CASE EVENT DATE: 20180822
